FAERS Safety Report 23526435 (Version 2)
Quarter: 2024Q1

REPORT INFORMATION
  Report Type: Other
  Country: IN (occurrence: None)
  Receive Date: 20240215
  Receipt Date: 20240220
  Transmission Date: 20240410
  Serious: Yes (Death, Other)
  Sender: FDA-Public Use
  Company Number: IN-ROCHE-3508928

PATIENT

DRUGS (1)
  1. RITUXIMAB [Suspect]
     Active Substance: RITUXIMAB
     Indication: Systemic lupus erythematosus
     Route: 065

REACTIONS (31)
  - Infection [Fatal]
  - Respiratory tract infection [Unknown]
  - Skin infection [Unknown]
  - Herpes zoster [Unknown]
  - COVID-19 [Unknown]
  - Escherichia infection [Unknown]
  - Acinetobacter infection [Unknown]
  - Arthritis bacterial [Unknown]
  - Endocarditis [Unknown]
  - Sepsis [Unknown]
  - Infusion related reaction [Unknown]
  - Soft tissue infection [Unknown]
  - Central nervous system infection [Unknown]
  - Gastrointestinal infection [Unknown]
  - Urinary tract infection [Unknown]
  - Ascariasis [Unknown]
  - H1N1 influenza [Unknown]
  - Corynebacterium infection [Unknown]
  - Staphylococcal infection [Unknown]
  - Stenotrophomonas infection [Unknown]
  - Burkholderia cepacia complex infection [Unknown]
  - Aspergillus infection [Unknown]
  - Staphylococcal infection [Unknown]
  - Enterococcal infection [Unknown]
  - Chromoblastomycosis [Unknown]
  - Tuberculosis [Unknown]
  - Pneumococcal infection [Unknown]
  - Herpes simplex [Unknown]
  - Klebsiella infection [Unknown]
  - Acarodermatitis [Unknown]
  - Providencia infection [Unknown]
